FAERS Safety Report 18173024 (Version 5)
Quarter: 2021Q1

REPORT INFORMATION
  Report Type: Report from Study
  Country: US (occurrence: US)
  Receive Date: 20200819
  Receipt Date: 20210201
  Transmission Date: 20210419
  Serious: Yes (Hospitalization, Other)
  Sender: FDA-Public Use
  Company Number: NVSC2020US227128

PATIENT
  Age: 75 Year
  Sex: Male

DRUGS (2)
  1. XELJANZ [Suspect]
     Active Substance: TOFACITINIB CITRATE
     Indication: RHEUMATOID ARTHRITIS
     Dosage: UNK
     Route: 065
  2. ENTRESTO [Suspect]
     Active Substance: SACUBITRIL\VALSARTAN
     Indication: PRODUCT USED FOR UNKNOWN INDICATION
     Dosage: UNK
     Route: 065

REACTIONS (15)
  - Peripheral swelling [Unknown]
  - Fatigue [Unknown]
  - Pneumonia [Unknown]
  - Concomitant disease aggravated [Unknown]
  - Ejection fraction abnormal [Unknown]
  - Oropharyngeal pain [Unknown]
  - Hypoaesthesia [Not Recovered/Not Resolved]
  - Procedural headache [Unknown]
  - Atrial fibrillation [Unknown]
  - Back pain [Not Recovered/Not Resolved]
  - Post procedural swelling [Unknown]
  - Throat clearing [Unknown]
  - Chest discomfort [Unknown]
  - Respiratory tract congestion [Unknown]
  - Pain in extremity [Recovering/Resolving]

NARRATIVE: CASE EVENT DATE: 202011
